FAERS Safety Report 8124816-3 (Version None)
Quarter: 2012Q1

REPORT INFORMATION
  Report Type: 
  Country: None (occurrence: None)
  Receive Date: 20120209
  Receipt Date: 20120206
  Transmission Date: 20120608
  Serious: Yes (Hospitalization)
  Sender: FDA-Public Use
  Company Number: US-SHIRE-ALL1-2012-00717

PATIENT
  Sex: Female
  Weight: 56.689 kg

DRUGS (6)
  1. VYVANSE [Suspect]
     Dosage: 70 MG, 1X/DAY:QD
     Route: 048
     Dates: start: 20100101
  2. SYNTHROID [Concomitant]
     Indication: HYPOTHYROIDISM
     Dosage: 7.5 ?G, 1X/DAY:QD
     Route: 048
     Dates: start: 19870101
  3. ANTIHISTAMINES [Suspect]
     Indication: PRODUCT USED FOR UNKNOWN INDICATION
     Dosage: UNK, UNKNOWN
     Route: 065
  4. VYVANSE [Suspect]
     Indication: PRODUCT USED FOR UNKNOWN INDICATION
     Dosage: UNK, UNKNOWN
     Route: 048
     Dates: start: 20100101, end: 20100101
  5. CELEXA [Concomitant]
     Indication: DEPRESSION
     Dosage: (1/2 OF A 40 MG TABLET)UNK UNK, 1X/DAY:QD
     Route: 048
     Dates: start: 20100101
  6. XANAX [Concomitant]
     Indication: TREMOR
     Dosage: 1 MG, AS REQ'D
     Route: 048
     Dates: start: 19920101

REACTIONS (6)
  - DRUG EFFECT DECREASED [None]
  - UPPER LIMB FRACTURE [None]
  - PRODUCT QUALITY ISSUE [None]
  - MALAISE [None]
  - BREAST CANCER [None]
  - ROAD TRAFFIC ACCIDENT [None]
